APPROVED DRUG PRODUCT: LEUCOVORIN CALCIUM PRESERVATIVE FREE
Active Ingredient: LEUCOVORIN CALCIUM
Strength: EQ 350MG BASE/VIAL
Dosage Form/Route: INJECTABLE;INJECTION
Application: A040335 | Product #001 | TE Code: AP
Applicant: HIKMA PHARMACEUTICALS USA INC
Approved: Apr 20, 2000 | RLD: No | RS: Yes | Type: RX